FAERS Safety Report 26086211 (Version 1)
Quarter: 2025Q4

REPORT INFORMATION
  Report Type: Spontaneous
  Country: US (occurrence: US)
  Receive Date: 20251125
  Receipt Date: 20251125
  Transmission Date: 20260118
  Serious: Yes (Other)
  Sender: REDHILL BIOPHARMA
  Company Number: US-RDH-RDH202511-000017

PATIENT

DRUGS (1)
  1. TALICIA [Suspect]
     Active Substance: AMOXICILLIN\OMEPRAZOLE MAGNESIUM\RIFABUTIN
     Indication: Product used for unknown indication
     Dosage: COMPLETED FULL COURSE
     Route: 048

REACTIONS (1)
  - Clostridium difficile infection [Unknown]
